FAERS Safety Report 4345749-4 (Version None)
Quarter: 2004Q2

REPORT INFORMATION
  Report Type: 
  Country: None (occurrence: None)
  Receive Date: 20040421
  Receipt Date: 20040405
  Transmission Date: 20050107
  Serious: Yes (Hospitalization)
  Sender: FDA-Public Use
  Company Number: DSA_24229_2004

PATIENT
  Age: 71 Year
  Sex: Male

DRUGS (2)
  1. ENALAPRIL MALEATE AND HYDROCHLOROTHIAZIDE [Suspect]
     Dates: start: 20040204, end: 20040228
  2. OXACILLIN [Suspect]
     Indication: POSTOPERATIVE FEVER
     Dosage: 6 G Q DAY PO
     Route: 048
     Dates: start: 20040223, end: 20040227

REACTIONS (5)
  - ERYTHEMA [None]
  - LEUKOPENIA [None]
  - MYELOID MATURATION ARREST [None]
  - NEUTROPENIA [None]
  - POSTOPERATIVE FEVER [None]
